FAERS Safety Report 9553647 (Version 1)
Quarter: 2013Q3

REPORT INFORMATION
  Report Type: Spontaneous
  Country: US (occurrence: None)
  Receive Date: 20130924
  Receipt Date: 20130924
  Transmission Date: 20140515
  Serious: Yes (Disabling)
  Sender: FDA-Public Use
  Company Number: None

PATIENT
  Age: 50 Year
  Sex: Male
  Weight: 99.79 kg

DRUGS (1)
  1. ENBREL [Suspect]
     Indication: PSORIATIC ARTHROPATHY
     Dosage: 50 MG , GIVEN INTO/ UNDER THE SKIN
     Dates: start: 20050807, end: 20111228

REACTIONS (3)
  - Acute disseminated encephalomyelitis [None]
  - Weight decreased [None]
  - Sensory loss [None]
